FAERS Safety Report 10109120 (Version 3)
Quarter: 2014Q2

REPORT INFORMATION
  Report Type: Spontaneous
  Country: GB (occurrence: GB)
  Receive Date: 20140425
  Receipt Date: 20140507
  Transmission Date: 20141212
  Serious: Yes (Other)
  Sender: FDA-Public Use
  Company Number: GB-JNJFOC-20140412136

PATIENT
  Sex: 0

DRUGS (6)
  1. DOXORUBICIN [Suspect]
     Indication: PLASMA CELL MYELOMA
     Dosage: 2-4 21-DAY CYCLES
     Route: 065
  2. BORTEZOMIB [Suspect]
     Indication: PLASMA CELL MYELOMA
     Dosage: 2-4 21-DAY CYCLES
     Route: 065
  3. DEXAMETHASONE [Suspect]
     Indication: PLASMA CELL MYELOMA
     Dosage: 2-4 21-DAY CYCLES
     Route: 065
  4. CYCLOPHOSPHAMIDE [Concomitant]
     Route: 065
  5. GRANULOCYTE COLONY-STIMULATING FACTOR [Concomitant]
     Route: 065
  6. PLERIXAFOR [Concomitant]
     Route: 065

REACTIONS (9)
  - Thrombocytopenia [Unknown]
  - Adverse event [Unknown]
  - Infection [Unknown]
  - Nausea [Unknown]
  - Vomiting [Unknown]
  - Skin toxicity [Unknown]
  - Pyrexia [Unknown]
  - Peripheral motor neuropathy [Unknown]
  - Peripheral sensory neuropathy [Unknown]
